FAERS Safety Report 4751678-4 (Version None)
Quarter: 2005Q3

REPORT INFORMATION
  Report Type: 
  Country: None (occurrence: None)
  Receive Date: 20050822
  Receipt Date: 20050804
  Transmission Date: 20060218
  Serious: Yes (Other)
  Sender: FDA-Public Use
  Company Number: 2005112131

PATIENT
  Age: 55 Year
  Sex: Female

DRUGS (7)
  1. ATARAX [Suspect]
     Indication: ILL-DEFINED DISORDER
     Dosage: 2 AMPULES DAILY, INTRAVENOUS
     Route: 042
     Dates: start: 20050320, end: 20050321
  2. VEEN-F (CALCIUM CHLORIDE ANHYDROUS, MAGNESIUM CHLORIDE ANHYDROUS, POTA [Concomitant]
  3. CEPHADOL (DIFENIDOL HYDROCHLORIDE) [Concomitant]
  4. GRANDAXI (TOFISOPAM) [Concomitant]
  5. MAZULENE (SODIUM GUALENATE) [Concomitant]
  6. MYONAL (EPERISONE HYDROCHLORIDE) [Concomitant]
  7. RIZE (CLOTRIAZEPAM) [Concomitant]

REACTIONS (2)
  - ILEUS PARALYTIC [None]
  - PYREXIA [None]
